FAERS Safety Report 18749337 (Version 22)
Quarter: 2025Q3

REPORT INFORMATION
  Report Type: Report from Study
  Country: US (occurrence: US)
  Receive Date: 20210116
  Receipt Date: 20250826
  Transmission Date: 20251020
  Serious: Yes (Hospitalization, Other)
  Sender: TAKEDA
  Company Number: US-TAKEDA-2021TUS002147

PATIENT
  Sex: Male
  Weight: 69 kg

DRUGS (69)
  1. HUMAN IMMUNOGLOBULIN G [Suspect]
     Active Substance: HUMAN IMMUNOGLOBULIN G
     Indication: Immunodeficiency common variable
     Dosage: 30 GRAM, Q4WEEKS
     Dates: start: 20180301
  2. HUMAN IMMUNOGLOBULIN G [Suspect]
     Active Substance: HUMAN IMMUNOGLOBULIN G
     Indication: IgG deficiency
     Dosage: 30 GRAM, Q4WEEKS
  3. HUMAN IMMUNOGLOBULIN G [Suspect]
     Active Substance: HUMAN IMMUNOGLOBULIN G
     Dosage: 40 GRAM, Q4WEEKS
     Dates: start: 20220309
  4. HUMAN IMMUNOGLOBULIN G [Suspect]
     Active Substance: HUMAN IMMUNOGLOBULIN G
     Dosage: 30 GRAM, Q4WEEKS
  5. DIPHENHYDRAMINE [Concomitant]
     Active Substance: DIPHENHYDRAMINE
  6. NORVASC [Concomitant]
     Active Substance: AMLODIPINE BESYLATE
  7. NASACORT [Concomitant]
     Active Substance: TRIAMCINOLONE ACETONIDE
  8. CYANOCOBALAMIN [Concomitant]
     Active Substance: CYANOCOBALAMIN
  9. SILDENAFIL CITRATE [Concomitant]
     Active Substance: SILDENAFIL CITRATE
  10. NEURONTIN [Concomitant]
     Active Substance: GABAPENTIN
  11. EPINEPHRINE [Concomitant]
     Active Substance: EPINEPHRINE
  12. SODIUM CHLORIDE [Concomitant]
     Active Substance: SODIUM CHLORIDE
  13. PROPRANOLOL HYDROCHLORIDE [Concomitant]
     Active Substance: PROPRANOLOL HYDROCHLORIDE
  14. ROBAXIN [Concomitant]
     Active Substance: METHOCARBAMOL
  15. BENAZEPRIL HYDROCHLORIDE [Concomitant]
     Active Substance: BENAZEPRIL HYDROCHLORIDE
  16. VITAMIN D3 [Concomitant]
     Active Substance: CHOLECALCIFEROL
  17. ACETYLCARNITINE [Concomitant]
     Active Substance: ACETYLCARNITINE
  18. HYDROCHLOROTHIAZIDE [Concomitant]
     Active Substance: HYDROCHLOROTHIAZIDE
  19. ALLEGRA ALLERGY [Concomitant]
     Active Substance: FEXOFENADINE HYDROCHLORIDE
  20. TRELEGY ELLIPTA [Concomitant]
     Active Substance: FLUTICASONE FUROATE\UMECLIDINIUM BROMIDE\VILANTEROL TRIFENATATE
  21. TRIAMCINOLONE ACETONIDE [Concomitant]
     Active Substance: TRIAMCINOLONE ACETONIDE
  22. TRAMADOL HCL [Concomitant]
     Active Substance: TRAMADOL HYDROCHLORIDE
  23. ASPIRIN [Concomitant]
     Active Substance: ASPIRIN
  24. ACETAMINOPHEN [Concomitant]
     Active Substance: ACETAMINOPHEN
  25. SINGULAIR [Concomitant]
     Active Substance: MONTELUKAST SODIUM
  26. ZINC [Concomitant]
     Active Substance: ZINC
  27. OXYGEN [Concomitant]
     Active Substance: OXYGEN
  28. MINERALS\VITAMINS [Concomitant]
     Active Substance: MINERALS\VITAMINS
  29. ALBUTEROL SULFATE [Concomitant]
     Active Substance: ALBUTEROL SULFATE
  30. METHIMAZOLE [Concomitant]
     Active Substance: METHIMAZOLE
  31. TOPROL XL [Concomitant]
     Active Substance: METOPROLOL SUCCINATE
  32. OMEPRAZOLE [Concomitant]
     Active Substance: OMEPRAZOLE
  33. NUCALA [Concomitant]
     Active Substance: MEPOLIZUMAB
  34. ALLOPURINOL [Concomitant]
     Active Substance: ALLOPURINOL
  35. KLOR-CON [Concomitant]
     Active Substance: POTASSIUM CHLORIDE
  36. LIPITOR [Concomitant]
     Active Substance: ATORVASTATIN CALCIUM
  37. MUCINEX [Concomitant]
     Active Substance: GUAIFENESIN
  38. ZETIA [Concomitant]
     Active Substance: EZETIMIBE
  39. MOBIC [Concomitant]
     Active Substance: MELOXICAM
  40. LIDOCAINE [Concomitant]
     Active Substance: LIDOCAINE
  41. VITAMIN B [Concomitant]
     Active Substance: VITAMIN B
  42. BELSOMRA [Concomitant]
     Active Substance: SUVOREXANT
  43. TESTOSTERONE [Concomitant]
     Active Substance: TESTOSTERONE
  44. MELATONIN [Concomitant]
     Active Substance: MELATONIN
  45. SILVER [Concomitant]
     Active Substance: SILVER
  46. ALPRAZOLAM [Concomitant]
     Active Substance: ALPRAZOLAM
  47. CITRUCEL [Concomitant]
     Active Substance: METHYLCELLULOSE (4000 CPS)
  48. ANORO ELLIPTA [Concomitant]
     Active Substance: UMECLIDINIUM BROMIDE\VILANTEROL TRIFENATATE
  49. PROTONIX [Concomitant]
     Active Substance: PANTOPRAZOLE SODIUM
  50. BENAZEPRIL [Concomitant]
     Active Substance: BENAZEPRIL HYDROCHLORIDE
  51. CARAFATE [Concomitant]
     Active Substance: SUCRALFATE
  52. DALIRESP [Concomitant]
     Active Substance: ROFLUMILAST
  53. TESTOSTERONE CYPIONATE [Concomitant]
     Active Substance: TESTOSTERONE CYPIONATE
  54. EZETIMIBE [Concomitant]
     Active Substance: EZETIMIBE
  55. VOLTAREN [Concomitant]
     Active Substance: DICLOFENAC SODIUM
  56. PANTOPRAZOLE SODIUM [Concomitant]
     Active Substance: PANTOPRAZOLE SODIUM
  57. SINEMET [Concomitant]
     Active Substance: CARBIDOPA\LEVODOPA
  58. ASCORBIC ACID [Concomitant]
     Active Substance: ASCORBIC ACID
  59. METOPROLOL SUCCINATE [Concomitant]
     Active Substance: METOPROLOL SUCCINATE
  60. DIPHENHYDRAMINE HYDROCHLORIDE [Concomitant]
     Active Substance: DIPHENHYDRAMINE HYDROCHLORIDE
  61. FEXOFENADINE HYDROCHLORIDE [Concomitant]
     Active Substance: FEXOFENADINE HYDROCHLORIDE
  62. FERROUS SULFATE [Concomitant]
     Active Substance: FERROUS SULFATE
  63. ZINC GLUCONATE [Concomitant]
     Active Substance: ZINC GLUCONATE
  64. LEVODOPA [Concomitant]
     Active Substance: LEVODOPA
  65. CARBIDOPA [Concomitant]
     Active Substance: CARBIDOPA
  66. ALBUTEROL SULFATE [Concomitant]
     Active Substance: ALBUTEROL SULFATE
  67. IPRATROPIUM BROMIDE [Concomitant]
     Active Substance: IPRATROPIUM BROMIDE
  68. MELOXICAM [Concomitant]
     Active Substance: MELOXICAM
  69. ZYRTEC [Concomitant]
     Active Substance: CETIRIZINE HYDROCHLORIDE

REACTIONS (26)
  - Pneumonia [Unknown]
  - Chronic obstructive pulmonary disease [Unknown]
  - Parkinson^s disease [Unknown]
  - Corticobasal degeneration [Unknown]
  - Syncope [Unknown]
  - Bronchitis [Recovering/Resolving]
  - Productive cough [Recovering/Resolving]
  - Dysgraphia [Unknown]
  - COVID-19 [Unknown]
  - Fall [Unknown]
  - Gait disturbance [Unknown]
  - Joint injury [Unknown]
  - Scratch [Unknown]
  - Musculoskeletal discomfort [Recovering/Resolving]
  - Mobility decreased [Recovering/Resolving]
  - Limb injury [Unknown]
  - Sputum discoloured [Unknown]
  - Neck pain [Recovered/Resolved]
  - Nasopharyngitis [Recovering/Resolving]
  - Memory impairment [Unknown]
  - Obstruction [Unknown]
  - Cyst [Unknown]
  - Balance disorder [Unknown]
  - Tremor [Unknown]
  - Head discomfort [Unknown]
  - Hypersensitivity [Unknown]
